FAERS Safety Report 25374072 (Version 4)
Quarter: 2025Q3

REPORT INFORMATION
  Report Type: Spontaneous
  Country: CO (occurrence: CO)
  Receive Date: 20250529
  Receipt Date: 20250728
  Transmission Date: 20251021
  Serious: No
  Sender: PFIZER
  Company Number: CO-PFIZER INC-PV202500062511

PATIENT
  Age: 4 Year
  Sex: Female

DRUGS (1)
  1. GENOTROPIN [Suspect]
     Active Substance: SOMATROPIN
     Dosage: 0.4 MG, DAILY

REACTIONS (2)
  - Device leakage [Unknown]
  - Injection site haemorrhage [Unknown]
